FAERS Safety Report 10924471 (Version 2)
Quarter: 2015Q2

REPORT INFORMATION
  Report Type: Spontaneous
  Country: US (occurrence: US)
  Receive Date: 20150318
  Receipt Date: 20150524
  Transmission Date: 20150821
  Serious: No
  Sender: FDA-Public Use
  Company Number: US-JNJFOC-20130312472

PATIENT
  Sex: Female

DRUGS (7)
  1. METYRAPONE [Suspect]
     Active Substance: METYRAPONE
     Indication: PITUITARY-DEPENDENT CUSHING^S SYNDROME
     Dosage: DOSAGE WAS TITRATED TO A MAXIMUM OF 1200 MG DAILY
     Route: 065
     Dates: start: 20020301
  2. KETOCONAZOLE. [Suspect]
     Active Substance: KETOCONAZOLE
     Indication: PITUITARY-DEPENDENT CUSHING^S SYNDROME
     Route: 065
     Dates: start: 20020501, end: 200206
  3. KETOCONAZOLE. [Suspect]
     Active Substance: KETOCONAZOLE
     Indication: PITUITARY-DEPENDENT CUSHING^S SYNDROME
     Route: 065
     Dates: start: 20020401
  4. METYRAPONE [Suspect]
     Active Substance: METYRAPONE
     Indication: PITUITARY-DEPENDENT CUSHING^S SYNDROME
     Route: 065
     Dates: start: 20020501, end: 200206
  5. KETOCONAZOLE. [Suspect]
     Active Substance: KETOCONAZOLE
     Indication: PITUITARY-DEPENDENT CUSHING^S SYNDROME
     Route: 065
     Dates: start: 20020201
  6. KETOCONAZOLE. [Suspect]
     Active Substance: KETOCONAZOLE
     Indication: PITUITARY-DEPENDENT CUSHING^S SYNDROME
     Route: 065
     Dates: start: 20020301
  7. METYRAPONE [Suspect]
     Active Substance: METYRAPONE
     Indication: PITUITARY-DEPENDENT CUSHING^S SYNDROME
     Route: 065
     Dates: start: 20020401

REACTIONS (5)
  - Drug ineffective for unapproved indication [Unknown]
  - Product use issue [Unknown]
  - Skin striae [Unknown]
  - Alopecia [Unknown]
  - Weight increased [Unknown]
